FAERS Safety Report 26146670 (Version 1)
Quarter: 2025Q4

REPORT INFORMATION
  Report Type: Spontaneous
  Country: CA (occurrence: CA)
  Receive Date: 20251211
  Receipt Date: 20251211
  Transmission Date: 20260117
  Serious: Yes (Other)
  Sender: PFIZER
  Company Number: CA-PFIZER INC-PV202500145118

PATIENT
  Age: 69 Year
  Sex: Male

DRUGS (5)
  1. BRAFTOVI [Suspect]
     Active Substance: ENCORAFENIB
     Dosage: UNK
     Dates: start: 202501, end: 2025
  2. BRAFTOVI [Suspect]
     Active Substance: ENCORAFENIB
     Dosage: DOSE REDUCTION 4 CO OF ENCO
     Dates: start: 2025
  3. MEKTOVI [Suspect]
     Active Substance: BINIMETINIB
     Dosage: UNK
     Dates: start: 202501, end: 2025
  4. MEKTOVI [Suspect]
     Active Substance: BINIMETINIB
     Dosage: DOSE REDUCTION 2 CO OF BINI
     Dates: start: 2025
  5. PERINDOPRIL [Concomitant]
     Active Substance: PERINDOPRIL

REACTIONS (4)
  - Acute kidney injury [Recovered/Resolved]
  - Malignant neoplasm progression [Unknown]
  - Pyrexia [Recovering/Resolving]
  - Hepatic enzyme increased [Recovering/Resolving]

NARRATIVE: CASE EVENT DATE: 20250101
